FAERS Safety Report 20626517 (Version 1)
Quarter: 2022Q1

REPORT INFORMATION
  Report Type: Spontaneous
  Country: US (occurrence: US)
  Receive Date: 20220323
  Receipt Date: 20220323
  Transmission Date: 20220423
  Serious: Yes (Hospitalization)
  Sender: FDA-Public Use
  Company Number: US-GW PHARMA-202203USGW01329

PATIENT
  Age: 15 Year
  Sex: Female

DRUGS (2)
  1. EPIDIOLEX [Interacting]
     Active Substance: CANNABIDIOL
     Indication: Lennox-Gastaut syndrome
     Dosage: 570 MILLIGRAM
     Dates: start: 201904
  2. DEPAKOTE [Interacting]
     Active Substance: DIVALPROEX SODIUM
     Indication: Seizure
     Dosage: UNK
     Route: 065
     Dates: start: 202201

REACTIONS (4)
  - Coma [Recovered/Resolved]
  - Brain oedema [Recovered/Resolved]
  - Seizure [Recovered/Resolved]
  - Drug interaction [Unknown]

NARRATIVE: CASE EVENT DATE: 20220101
